FAERS Safety Report 16057889 (Version 1)
Quarter: 2019Q1

REPORT INFORMATION
  Report Type: Spontaneous
  Country: KR (occurrence: KR)
  Receive Date: 20190311
  Receipt Date: 20190311
  Transmission Date: 20190418
  Serious: Yes (Other)
  Sender: FDA-Public Use
  Company Number: PHHY2019KR045758

PATIENT
  Age: 34 Year
  Sex: Female

DRUGS (1)
  1. TRIAMCINOLONE [Suspect]
     Active Substance: TRIAMCINOLONE
     Indication: HYPERTROPHIC SCAR
     Route: 026

REACTIONS (3)
  - Cutaneous nocardiosis [Recovered/Resolved]
  - Product contamination [Unknown]
  - Product use in unapproved indication [Unknown]
